FAERS Safety Report 13233958 (Version 1)
Quarter: 2017Q1

REPORT INFORMATION
  Report Type: Spontaneous
  Country: US (occurrence: US)
  Receive Date: 20170215
  Receipt Date: 20170215
  Transmission Date: 20170428
  Serious: No
  Sender: FDA-Public Use
  Company Number: US-BAYER-2017-029788

PATIENT
  Age: 72 Year
  Sex: Male
  Weight: 185 kg

DRUGS (5)
  1. ALKA-SELTZER EFFERVESCENT COLD [Suspect]
     Active Substance: ACETAMINOPHEN\CHLORPHENIRAMINE\DEXTROMETHORPHAN\PHENYLEPHRINE
     Indication: DYSPEPSIA
     Dosage: UNK
  2. METOPROLOL. [Concomitant]
     Active Substance: METOPROLOL
  3. LINAGLIPTIN [Concomitant]
     Active Substance: LINAGLIPTIN
  4. LISINOPRIL. [Concomitant]
     Active Substance: LISINOPRIL
  5. ALEVE [Suspect]
     Active Substance: NAPROXEN SODIUM
     Indication: PAIN
     Dosage: 2 DF, QD
     Route: 048
     Dates: start: 201612, end: 20170213

REACTIONS (4)
  - Product use issue [Unknown]
  - Dyspepsia [Recovering/Resolving]
  - Dyspepsia [Recovered/Resolved]
  - Insomnia [Unknown]

NARRATIVE: CASE EVENT DATE: 201612
